FAERS Safety Report 7359892-9 (Version None)
Quarter: 2011Q1

REPORT INFORMATION
  Report Type: 
  Country: None (occurrence: None)
  Receive Date: 20110317
  Receipt Date: 20110307
  Transmission Date: 20110831
  Serious: Yes (Hospitalization)
  Sender: FDA-Public Use
  Company Number: GB-BAYER-2011-022003

PATIENT
  Age: 62 Year
  Sex: Male

DRUGS (2)
  1. THIORIDAZIN [Concomitant]
  2. NAPROXEN SODIUM [Suspect]
     Indication: BACK PAIN
     Dosage: 500 MG, BID

REACTIONS (1)
  - LARGE INTESTINE PERFORATION [None]
